FAERS Safety Report 12160429 (Version 1)
Quarter: 2016Q1

REPORT INFORMATION
  Report Type: Spontaneous
  Country: ES (occurrence: ES)
  Receive Date: 20160308
  Receipt Date: 20160308
  Transmission Date: 20160526
  Serious: Yes (Death)
  Sender: FDA-Public Use
  Company Number: ES-JNJFOC-20160300076

PATIENT
  Age: 17 Day

DRUGS (4)
  1. IBUPROFEN. [Suspect]
     Active Substance: IBUPROFEN
     Route: 065
  2. PARACETAMOL [Suspect]
     Active Substance: ACETAMINOPHEN
     Route: 065
  3. PARACETAMOL [Suspect]
     Active Substance: ACETAMINOPHEN
     Indication: PATENT DUCTUS ARTERIOSUS REPAIR
     Route: 065
  4. IBUPROFEN. [Suspect]
     Active Substance: IBUPROFEN
     Indication: PATENT DUCTUS ARTERIOSUS REPAIR
     Dosage: 1 COURSE ON DAY 3
     Route: 065

REACTIONS (3)
  - Product use issue [Fatal]
  - Death [Fatal]
  - Off label use [Fatal]
